FAERS Safety Report 9974242 (Version 1)
Quarter: 2014Q1

REPORT INFORMATION
  Report Type: Report from Study
  Country: US (occurrence: US)
  Receive Date: 20140306
  Receipt Date: 20140306
  Transmission Date: 20141002
  Serious: No
  Sender: FDA-Public Use
  Company Number: US-ABBVIE-13P-163-1155376-00

PATIENT
  Age: 57 Year
  Sex: Female

DRUGS (8)
  1. HUMIRA [Suspect]
     Indication: COLITIS ULCERATIVE
     Dates: start: 201307
  2. PREDNISONE [Concomitant]
     Indication: COLITIS ULCERATIVE
     Dosage: 15 MG BY MOUTH DAILY
  3. ASACOL HD [Concomitant]
     Indication: COLITIS ULCERATIVE
     Dosage: BY MOUTH
  4. BUPROPION [Concomitant]
     Indication: DEPRESSION
     Dosage: 300 MG BY MOUTH DAILY
  5. CYMBALTA [Concomitant]
     Indication: DEPRESSION
     Dosage: 50 MG BY MOUTH DAILY
  6. ALLEGRA [Concomitant]
     Indication: HYPERSENSITIVITY
  7. ESTRADIOL [Concomitant]
     Indication: MENOPAUSE
     Dosage: DAILY
  8. PROMETRIUM [Concomitant]
     Indication: MENOPAUSE
     Dosage: DAILY

REACTIONS (1)
  - Alopecia [Not Recovered/Not Resolved]
